FAERS Safety Report 17495251 (Version 1)
Quarter: 2020Q1

REPORT INFORMATION
  Report Type: Spontaneous
  Country: US (occurrence: US)
  Receive Date: 20200303
  Receipt Date: 20200303
  Transmission Date: 20200409
  Serious: Yes (Hospitalization)
  Sender: FDA-Public Use
  Company Number: None

PATIENT
  Age: 63 Year
  Sex: Male

DRUGS (17)
  1. SOD BICARB [Concomitant]
  2. ELIQUIS [Concomitant]
     Active Substance: APIXABAN
  3. PROCARDIA [Concomitant]
     Active Substance: NIFEDIPINE
  4. VITAMIN D3 [Concomitant]
     Active Substance: CHOLECALCIFEROL
  5. BUMETANIDE. [Concomitant]
     Active Substance: BUMETANIDE
  6. METOLAZONE. [Concomitant]
     Active Substance: METOLAZONE
  7. RAMIPRIL. [Concomitant]
     Active Substance: RAMIPRIL
  8. TORSEMIDE. [Concomitant]
     Active Substance: TORSEMIDE
  9. ASPIRIN. [Concomitant]
     Active Substance: ASPIRIN
  10. COENZYME Q10 [Concomitant]
     Active Substance: UBIDECARENONE
  11. TEMAZEPAM. [Concomitant]
     Active Substance: TEMAZEPAM
  12. SILDENAFIL. [Suspect]
     Active Substance: SILDENAFIL
     Indication: PULMONARY ARTERIAL HYPERTENSION
     Route: 048
     Dates: start: 20160408
  13. ALLOPURINOL. [Concomitant]
     Active Substance: ALLOPURINOL
  14. POT CL [Concomitant]
  15. PRILOSEC [Concomitant]
     Active Substance: OMEPRAZOLE MAGNESIUM
  16. SPIRONOLACT [Concomitant]
     Active Substance: SPIRONOLACTONE
  17. MELATONIN [Concomitant]
     Active Substance: MELATONIN

REACTIONS (1)
  - Hospitalisation [None]

NARRATIVE: CASE EVENT DATE: 20200213
